FAERS Safety Report 4413061-0 (Version None)
Quarter: 2004Q3

REPORT INFORMATION
  Report Type: 
  Country: None (occurrence: None)
  Receive Date: 20040802
  Receipt Date: 20040802
  Transmission Date: 20050211
  Serious: Yes (Other)
  Sender: FDA-Public Use
  Company Number: None

PATIENT
  Sex: Male
  Weight: 82.5547 kg

DRUGS (8)
  1. OMEPRAZOLE [Suspect]
     Indication: GASTROOESOPHAGEAL REFLUX DISEASE
     Dosage: 20 MG QD ORAL
     Route: 048
     Dates: start: 20040220, end: 20040405
  2. ALBUTEROL/IPRATROP [Concomitant]
  3. ALLOPURINOL [Concomitant]
  4. KETOCONAZOLE [Concomitant]
  5. LISINOPRIL [Concomitant]
  6. SILDENAFIL CITRATE [Concomitant]
  7. SIMVASTATIN [Concomitant]
  8. TERAZOSIN HCL [Concomitant]

REACTIONS (3)
  - DIARRHOEA [None]
  - HYPOVOLAEMIA [None]
  - THROMBOCYTOPENIA [None]
